FAERS Safety Report 9805565 (Version 1)
Quarter: 2014Q1

REPORT INFORMATION
  Report Type: Spontaneous
  Country: US (occurrence: None)
  Receive Date: 20140108
  Receipt Date: 20140108
  Transmission Date: 20141002
  Serious: Yes (Life-Threatening, Hospitalization)
  Sender: FDA-Public Use
  Company Number: None

PATIENT
  Age: 74 Year
  Sex: Female
  Weight: 74.84 kg

DRUGS (6)
  1. OSPHENA [Suspect]
     Indication: ATROPHIC VULVOVAGINITIS
     Route: 048
     Dates: start: 20131105, end: 20131219
  2. CARAFATE [Concomitant]
  3. PROTONIX [Concomitant]
  4. ALDACTONE [Concomitant]
  5. REGLAN [Concomitant]
  6. ACYCLOVIR [Concomitant]

REACTIONS (2)
  - Pulmonary embolism [None]
  - Chest pain [None]
